FAERS Safety Report 18318368 (Version 1)
Quarter: 2020Q3

REPORT INFORMATION
  Report Type: Spontaneous
  Country: US (occurrence: US)
  Receive Date: 20200928
  Receipt Date: 20200928
  Transmission Date: 20201103
  Serious: No
  Sender: FDA-Public Use
  Company Number: US-SA-2020SA265420

PATIENT

DRUGS (1)
  1. KEVZARA [Suspect]
     Active Substance: SARILUMAB
     Indication: PRODUCT USED FOR UNKNOWN INDICATION
     Dosage: 200 MG, OTHER
     Route: 058
     Dates: start: 202002

REACTIONS (3)
  - Joint swelling [Unknown]
  - Product dose omission in error [Unknown]
  - Paraesthesia [Unknown]

NARRATIVE: CASE EVENT DATE: 202009
